FAERS Safety Report 21634428 (Version 1)
Quarter: 2022Q4

REPORT INFORMATION
  Report Type: Spontaneous
  Country: CN (occurrence: CN)
  Receive Date: 20221123
  Receipt Date: 20221123
  Transmission Date: 20230113
  Serious: Yes (Other)
  Sender: FDA-Public Use
  Company Number: CN-PFIZER INC-PV202200107116

PATIENT
  Age: 29 Year
  Sex: Female
  Weight: 54 kg

DRUGS (2)
  1. METHOTREXATE SODIUM [Suspect]
     Active Substance: METHOTREXATE SODIUM
     Indication: Ectopic pregnancy
     Dosage: 78 MG, 1X/DAY
     Route: 030
     Dates: start: 20221028, end: 20221028
  2. METHOTREXATE SODIUM [Suspect]
     Active Substance: METHOTREXATE SODIUM
     Dosage: 78 MG, 1X/DAY
     Route: 030
     Dates: start: 20221031, end: 20221031

REACTIONS (9)
  - Drug-induced liver injury [Unknown]
  - Hepatic function abnormal [Unknown]
  - Blood bilirubin increased [Unknown]
  - Alanine aminotransferase increased [Unknown]
  - Aspartate aminotransferase increased [Unknown]
  - Abdominal discomfort [Unknown]
  - Vaginal haemorrhage [Recovered/Resolved]
  - Abdominal pain lower [Recovered/Resolved]
  - Off label use [Unknown]

NARRATIVE: CASE EVENT DATE: 20221028
